FAERS Safety Report 7824582-2 (Version None)
Quarter: 2011Q4

REPORT INFORMATION
  Report Type: 
  Country: None (occurrence: None)
  Receive Date: 20111019
  Receipt Date: 20111005
  Transmission Date: 20120403
  Serious: Yes (Other)
  Sender: FDA-Public Use
  Company Number: US-ELI_LILLY_AND_COMPANY-US201110000273

PATIENT
  Sex: Female

DRUGS (4)
  1. ZOCOR [Concomitant]
     Indication: BLOOD CHOLESTEROL
  2. FORTEO [Suspect]
     Indication: OSTEOPOROSIS
     Dosage: 20 UG, QD
     Route: 065
     Dates: start: 20040101, end: 20060101
  3. ASPIRIN [Concomitant]
  4. PLAVIX [Concomitant]

REACTIONS (9)
  - INTERVERTEBRAL DISC DEGENERATION [None]
  - BACK PAIN [None]
  - PELVIC FRACTURE [None]
  - NERVE COMPRESSION [None]
  - BONE DISORDER [None]
  - INAPPROPRIATE SCHEDULE OF DRUG ADMINISTRATION [None]
  - DYSSTASIA [None]
  - PAIN [None]
  - MUSCLE DISORDER [None]
